FAERS Safety Report 5265035-8 (Version None)
Quarter: 2007Q1

REPORT INFORMATION
  Report Type: 
  Country: None (occurrence: None)
  Receive Date: 20061121
  Receipt Date: 20060725
  Transmission Date: 20070707
  Serious: No
  Sender: FDA-Public Use
  Company Number: TPA2006A01203

PATIENT
  Age: 35 Year
  Sex: Female
  Weight: 114.76 kg

DRUGS (6)
  1. ROZEREM [Suspect]
     Indication: INSOMNIA
     Dosage: 8 MG, HS, PER ORAL
     Route: 048
     Dates: start: 20060628, end: 20060712
  2. SEROQUEL [Concomitant]
  3. LAMICTAL [Concomitant]
  4. KLONOPIN [Concomitant]
  5. ABILIFY [Concomitant]
  6. WELLBUTRIN [Concomitant]

REACTIONS (1)
  - FLUID RETENTION [None]
